FAERS Safety Report 18822214 (Version 1)
Quarter: 2021Q1

REPORT INFORMATION
  Report Type: Spontaneous
  Country: FR (occurrence: FR)
  Receive Date: 20210202
  Receipt Date: 20210202
  Transmission Date: 20210419
  Serious: Yes (Hospitalization)
  Sender: FDA-Public Use
  Company Number: NVSC2021FR019718

PATIENT
  Age: 43 Year
  Sex: Male

DRUGS (1)
  1. PARACETAMOL [Suspect]
     Active Substance: ACETAMINOPHEN
     Indication: PAIN
     Dosage: 4G/J LE 01 ET LE 02/01 PUIS 16G SUR 12H
     Route: 048
     Dates: start: 20210101, end: 20210103

REACTIONS (3)
  - Wrong dose [Not Recovered/Not Resolved]
  - Hepatocellular injury [Recovering/Resolving]
  - Overdose [Recovered/Resolved]

NARRATIVE: CASE EVENT DATE: 20210103
